FAERS Safety Report 6983141-4 (Version None)
Quarter: 2010Q3

REPORT INFORMATION
  Report Type: 
  Country: None (occurrence: None)
  Receive Date: 20100910
  Receipt Date: 20100831
  Transmission Date: 20110219
  Serious: Yes (Hospitalization, Other)
  Sender: FDA-Public Use
  Company Number: TPA2010A04790

PATIENT
  Age: 61 Year
  Sex: Male

DRUGS (5)
  1. ACTOS [Suspect]
  2. VICTOZA [Suspect]
  3. METFORMIN HCL [Suspect]
  4. JANUVIA [Suspect]
  5. LIPITOR [Suspect]

REACTIONS (2)
  - ACUTE MYOCARDIAL INFARCTION [None]
  - GLYCOSYLATED HAEMOGLOBIN INCREASED [None]
